FAERS Safety Report 17256437 (Version 3)
Quarter: 2022Q1

REPORT INFORMATION
  Report Type: Report from Study
  Country: US (occurrence: None)
  Receive Date: 20200110
  Receipt Date: 20220120
  Transmission Date: 20220423
  Serious: Yes (Hospitalization)
  Sender: FDA-Public Use
  Company Number: US-ROCHE-2518323

PATIENT
  Age: 58 Year
  Sex: Female
  Weight: 86.9 kg

DRUGS (3)
  1. ATEZOLIZUMAB [Suspect]
     Active Substance: ATEZOLIZUMAB
     Indication: Ovarian epithelial cancer
     Dosage: MOST RECENT DOSE OF ATEZOLIZUMAB 800 MG PRIOR TO EVENT ONSET: 25/APR/2019
     Route: 041
     Dates: start: 20181213
  2. BEVACIZUMAB [Suspect]
     Active Substance: BEVACIZUMAB
     Indication: Ovarian epithelial cancer
     Dosage: MOST RECENT DOSE OF BEVACIZUMAB 10 MG PRIOR TO EVENT ONSET: 25/APR/2019
     Route: 042
     Dates: start: 20181213
  3. DOXORUBICIN HYDROCHLORIDE [Suspect]
     Active Substance: DOXORUBICIN HYDROCHLORIDE
     Indication: Ovarian epithelial cancer
     Route: 042
     Dates: start: 20181213

REACTIONS (4)
  - Acute kidney injury [Recovered/Resolved]
  - Hyperglycaemia [Recovered/Resolved]
  - Dyspnoea [Recovered/Resolved]
  - Cough [Unknown]

NARRATIVE: CASE EVENT DATE: 20190509
